FAERS Safety Report 5064354-8 (Version None)
Quarter: 2006Q3

REPORT INFORMATION
  Report Type: 
  Country: None (occurrence: None)
  Receive Date: 20060728
  Receipt Date: 20060627
  Transmission Date: 20061208
  Serious: Yes (Hospitalization, Other)
  Sender: FDA-Public Use
  Company Number: PHEH2006US08358

PATIENT
  Age: 48 Year
  Sex: Female
  Weight: 87.074 kg

DRUGS (1)
  1. ZELNORM [Suspect]
     Indication: CONSTIPATION
     Dosage: 6 MG, BID
     Route: 048
     Dates: start: 20051213, end: 20060113

REACTIONS (11)
  - ABASIA [None]
  - ALOPECIA [None]
  - ARTHRALGIA [None]
  - INJURY [None]
  - MALAISE [None]
  - MYALGIA [None]
  - PAIN IN EXTREMITY [None]
  - SKIN ULCER [None]
  - SPINAL OSTEOARTHRITIS [None]
  - WALKING AID USER [None]
  - WEIGHT INCREASED [None]
